FAERS Safety Report 14740495 (Version 1)
Quarter: 2018Q2

REPORT INFORMATION
  Report Type: Spontaneous
  Country: SE (occurrence: SE)
  Receive Date: 20180410
  Receipt Date: 20180410
  Transmission Date: 20180711
  Serious: Yes (Hospitalization)
  Sender: FDA-Public Use
  Company Number: SE-BAYER-2018-063748

PATIENT
  Age: 34 Year
  Sex: Female
  Weight: 69 kg

DRUGS (1)
  1. JAYDESS [Suspect]
     Active Substance: LEVONORGESTREL
     Indication: CONTRACEPTION
     Dosage: 14 MCG/24HR, CONT
     Route: 015

REACTIONS (7)
  - Visual impairment [Recovered/Resolved]
  - Depressed mood [Recovered/Resolved with Sequelae]
  - Dizziness [Recovered/Resolved with Sequelae]
  - Fatigue [Recovered/Resolved]
  - Photophobia [Recovered/Resolved with Sequelae]
  - Anxiety [Recovered/Resolved with Sequelae]
  - Palpitations [Recovered/Resolved with Sequelae]

NARRATIVE: CASE EVENT DATE: 20180213
